FAERS Safety Report 23398078 (Version 7)
Quarter: 2024Q4

REPORT INFORMATION
  Report Type: Spontaneous
  Country: US (occurrence: US)
  Receive Date: 20240112
  Receipt Date: 20241113
  Transmission Date: 20250114
  Serious: Yes (Life-Threatening, Hospitalization, Other)
  Sender: PFIZER
  Company Number: US-PFIZER INC-202400011012

PATIENT
  Age: 14 Day
  Sex: Male
  Weight: 3.03 kg

DRUGS (2)
  1. LIDOCAINE HYDROCHLORIDE [Suspect]
     Active Substance: LIDOCAINE HYDROCHLORIDE
     Indication: Local anaesthesia
     Dosage: 1 TIME INJECTION
     Route: 058
     Dates: start: 20231213, end: 20231213
  2. LIDOCAINE HYDROCHLORIDE [Suspect]
     Active Substance: LIDOCAINE HYDROCHLORIDE
     Dosage: 1 TIME INJECTION
     Route: 058
     Dates: start: 20231213, end: 20231213

REACTIONS (3)
  - Neonatal respiratory distress [Recovered/Resolved]
  - Infantile apnoea [Recovered/Resolved]
  - Neonatal respiratory arrest [Recovered/Resolved]

NARRATIVE: CASE EVENT DATE: 20231213
